FAERS Safety Report 5228910-6 (Version None)
Quarter: 2007Q1

REPORT INFORMATION
  Report Type: 
  Country: None (occurrence: None)
  Receive Date: 20070205
  Receipt Date: 20070125
  Transmission Date: 20070707
  Serious: Yes (Hospitalization)
  Sender: FDA-Public Use
  Company Number: FR-SANOFI-SYNTHELABO-A02200700305

PATIENT
  Age: 35 Year
  Sex: Female

DRUGS (5)
  1. TRANDATE [Concomitant]
     Indication: HYPERTENSION
     Dosage: UNK
     Route: 048
     Dates: start: 20060601, end: 20061215
  2. PLAVIX [Concomitant]
     Indication: SNEDDON'S SYNDROME
     Dosage: UNK
     Route: 048
     Dates: start: 20050101, end: 20061220
  3. PLAQUENIL [Suspect]
     Indication: SNEDDON'S SYNDROME
     Route: 048
     Dates: start: 20060926, end: 20061226
  4. EUPRESSYL [Concomitant]
     Indication: HYPERTENSION
     Dosage: UNK
     Route: 048
     Dates: start: 20060601, end: 20061215
  5. ASPIRIN [Suspect]
     Indication: DRUG USE FOR UNKNOWN INDICATION
     Dosage: UNK
     Route: 048

REACTIONS (3)
  - DRUG EXPOSURE DURING PREGNANCY [None]
  - THROMBOCYTOPENIA [None]
  - TRANSIENT ISCHAEMIC ATTACK [None]
